FAERS Safety Report 10100628 (Version 2)
Quarter: 2014Q2

REPORT INFORMATION
  Report Type: Spontaneous
  Country: US (occurrence: US)
  Receive Date: 20140423
  Receipt Date: 20140423
  Transmission Date: 20141212
  Serious: Yes (Hospitalization)
  Sender: FDA-Public Use
  Company Number: US-BAXTER-2014BAX018021

PATIENT
  Sex: Male
  Weight: 100 kg

DRUGS (4)
  1. 0.9% SODIUM CHLORIDE INJECTION [Suspect]
     Indication: HAEMODIALYSIS
     Route: 013
     Dates: start: 201310
  2. 0.9% SODIUM CHLORIDE INJECTION [Suspect]
     Indication: RENAL FAILURE CHRONIC
  3. COUMADIN [Suspect]
     Indication: ANTICOAGULANT THERAPY
     Route: 065
  4. COUMADIN [Suspect]
     Route: 065

REACTIONS (2)
  - International normalised ratio increased [Recovered/Resolved]
  - Arteriovenous fistula occlusion [Recovered/Resolved]
